FAERS Safety Report 8045680-7 (Version None)
Quarter: 2012Q1

REPORT INFORMATION
  Report Type: 
  Country: None (occurrence: None)
  Receive Date: 20120113
  Receipt Date: 20120111
  Transmission Date: 20120608
  Serious: No
  Sender: FDA-Public Use
  Company Number: US-BAYER-2012-003842

PATIENT
  Age: 75 Year
  Sex: Male

DRUGS (6)
  1. CARVEDILOL [Concomitant]
  2. UNKNOWN [Concomitant]
  3. BENICAR [Concomitant]
  4. POTASSIUM CHLORIDE [Concomitant]
  5. LEVITRA [Suspect]
     Indication: ERECTILE DYSFUNCTION
     Dosage: 10 MG, PRN
     Route: 048
     Dates: start: 20040101
  6. ZANTAC [Concomitant]

REACTIONS (4)
  - ABDOMINAL DISCOMFORT [None]
  - NASAL CONGESTION [None]
  - CYANOPSIA [None]
  - DYSPEPSIA [None]
